FAERS Safety Report 21369681 (Version 1)
Quarter: 2022Q3

REPORT INFORMATION
  Report Type: Spontaneous
  Country: CH (occurrence: CH)
  Receive Date: 20220923
  Receipt Date: 20220923
  Transmission Date: 20221027
  Serious: Yes (Death, Other)
  Sender: FDA-Public Use
  Company Number: CH-Accord-276994

PATIENT
  Age: 51 Year
  Sex: Male

DRUGS (4)
  1. TACROLIMUS [Suspect]
     Active Substance: TACROLIMUS
     Indication: Immunosuppression
  2. FLUDARABINE [Suspect]
     Active Substance: FLUDARABINE PHOSPHATE
     Indication: Immunosuppression
     Dosage: 30 MG/M2 I.V. DAY -6 TO DAY -2
     Route: 042
  3. TREOSULFAN [Suspect]
     Active Substance: TREOSULFAN
     Indication: Immunosuppression
     Dosage: (14 G/M2 I.V. DAY-4 TO DAY-2)
     Route: 042
  4. ALEMTUZUMAB [Concomitant]
     Active Substance: ALEMTUZUMAB
     Indication: Prophylaxis
     Dosage: 20 MG DAY -5 AND DAY - 4

REACTIONS (5)
  - Pneumonia [Fatal]
  - Febrile neutropenia [Unknown]
  - Neutropenic colitis [Unknown]
  - Mucosal inflammation [Recovered/Resolved]
  - Septic shock [Fatal]
